FAERS Safety Report 13903456 (Version 1)
Quarter: 2017Q3

REPORT INFORMATION
  Report Type: Spontaneous
  Country: US (occurrence: US)
  Receive Date: 20170824
  Receipt Date: 20170824
  Transmission Date: 20171127
  Serious: No
  Sender: FDA-Public Use
  Company Number: US-KAMADA LIMITED-2016US008264

PATIENT

DRUGS (1)
  1. GLASSIA [Suspect]
     Active Substance: .ALPHA.1-PROTEINASE INHIBITOR HUMAN
     Indication: ALPHA-1 ANTI-TRYPSIN DEFICIENCY
     Dosage: 3000 MG, 1/WEEK
     Route: 042
     Dates: start: 201606, end: 201608

REACTIONS (1)
  - Feeling cold [Recovered/Resolved]

NARRATIVE: CASE EVENT DATE: 20160810
